FAERS Safety Report 23919777 (Version 1)
Quarter: 2024Q2

REPORT INFORMATION
  Report Type: Report from Study
  Country: US (occurrence: US)
  Receive Date: 20240530
  Receipt Date: 20240530
  Transmission Date: 20240716
  Serious: Yes (Hospitalization)
  Sender: FDA-Public Use
  Company Number: US-RECORDATI RARE DISEASE INC.-2024003722

PATIENT

DRUGS (10)
  1. SIGNIFOR LAR [Suspect]
     Active Substance: PASIREOTIDE PAMOATE
     Indication: Cushing^s syndrome
     Dosage: 10 MG EVERY 28 DAYS
     Dates: start: 20220119, end: 2022
  2. SIGNIFOR LAR [Suspect]
     Active Substance: PASIREOTIDE PAMOATE
     Dosage: 20 MG EVERY 28 DAYS
     Dates: start: 202206, end: 2022
  3. SIGNIFOR LAR [Suspect]
     Active Substance: PASIREOTIDE PAMOATE
     Dosage: 30 MG EVERY 28 DAYS
     Dates: start: 202210
  4. SIGNIFOR LAR [Suspect]
     Active Substance: PASIREOTIDE PAMOATE
     Dosage: 40 MG EVERY 28 DAYS
     Dates: start: 202301
  5. CELEBREX [Concomitant]
     Active Substance: CELECOXIB
     Indication: Product used for unknown indication
     Dosage: 200 MG
  6. FERROUS SULFATE [Concomitant]
     Active Substance: FERROUS SULFATE
     Indication: Product used for unknown indication
     Dosage: 325 MG
  7. PANTOPRAZOLE [Concomitant]
     Active Substance: PANTOPRAZOLE
     Indication: Product used for unknown indication
     Dosage: 40 MG
  8. TYLENOL ARTHRITIS PAIN [Concomitant]
     Active Substance: ACETAMINOPHEN
     Indication: Product used for unknown indication
  9. VITAMIN D [Concomitant]
     Active Substance: VITAMIN D NOS
     Indication: Product used for unknown indication
  10. OXYCODONE [Concomitant]
     Active Substance: OXYCODONE\OXYCODONE HYDROCHLORIDE
     Indication: Product used for unknown indication

REACTIONS (1)
  - Knee operation [Unknown]

NARRATIVE: CASE EVENT DATE: 20240503
